FAERS Safety Report 6569584-1 (Version None)
Quarter: 2010Q1

REPORT INFORMATION
  Report Type: 
  Country: None (occurrence: None)
  Receive Date: 20100203
  Receipt Date: 20100203
  Transmission Date: 20100710
  Serious: No
  Sender: FDA-Public Use
  Company Number: None

PATIENT
  Sex: Female
  Weight: 77.1115 kg

DRUGS (2)
  1. PRILOSEC [Suspect]
     Indication: EROSIVE OESOPHAGITIS
     Dosage: 10MG OR 20MG QDAY P.O. 3 - 4 YEAR AGO {1WK
     Route: 048
  2. OMEPRAZOLE DR TAB. 20MG PROCTER + GAMBLE [Suspect]
     Indication: EROSIVE OESOPHAGITIS
     Dosage: 20MG QDAY P.O. 3 - 4 YRS AGO {1WK
     Route: 048

REACTIONS (3)
  - EROSIVE OESOPHAGITIS [None]
  - OESOPHAGEAL STENOSIS [None]
  - PRODUCT SUBSTITUTION ISSUE [None]
